FAERS Safety Report 21170270 (Version 1)
Quarter: 2022Q3

REPORT INFORMATION
  Report Type: Spontaneous
  Country: GB (occurrence: GB)
  Receive Date: 20220804
  Receipt Date: 20220804
  Transmission Date: 20221027
  Serious: Yes (Hospitalization, Other)
  Sender: FDA-Public Use
  Company Number: GB-ALKEM LABORATORIES LIMITED-GB-ALKEM-2022-05876

PATIENT
  Age: 26 Year
  Sex: Male

DRUGS (2)
  1. MESALAMINE [Suspect]
     Active Substance: MESALAMINE
     Indication: Colitis ulcerative
     Dosage: 400 MILLIGRAM, TID
     Route: 048
  2. MESALAMINE [Suspect]
     Active Substance: MESALAMINE
     Dosage: REDUCED DOSE
     Route: 048
     Dates: end: 199002

REACTIONS (3)
  - Tubulointerstitial nephritis [Recovered/Resolved]
  - Nephrogenic diabetes insipidus [Recovered/Resolved]
  - Weight decreased [Recovered/Resolved]
